FAERS Safety Report 6905087-X (Version None)
Quarter: 2010Q3

REPORT INFORMATION
  Report Type: 
  Country: None (occurrence: None)
  Receive Date: 20100804
  Receipt Date: 20090911
  Transmission Date: 20110219
  Serious: No
  Sender: FDA-Public Use
  Company Number: US-PFIZER INC-2009244206

PATIENT
  Sex: Female
  Weight: 68.027 kg

DRUGS (6)
  1. LYRICA [Suspect]
     Indication: ERYTHROMELALGIA
     Dosage: 25 MG, 2X/DAY
     Route: 048
     Dates: start: 20090701, end: 20090718
  2. ARTHROTEC [Concomitant]
     Dosage: UNK
  3. CYMBALTA [Concomitant]
     Dosage: UNK
  4. ESTROGENS CONJUGATED [Concomitant]
     Dosage: UNK
  5. LIPITOR [Concomitant]
     Dosage: UNK
  6. ZOLPIDEM [Concomitant]
     Dosage: UNK

REACTIONS (1)
  - URTICARIA [None]
